FAERS Safety Report 13035999 (Version 1)
Quarter: 2016Q4

REPORT INFORMATION
  Report Type: Spontaneous
  Country: BE (occurrence: BE)
  Receive Date: 20161216
  Receipt Date: 20161216
  Transmission Date: 20170207
  Serious: Yes (Other)
  Sender: FDA-Public Use
  Company Number: PHHY2016BE172433

PATIENT
  Sex: Female

DRUGS (1)
  1. GILENYA [Suspect]
     Active Substance: FINGOLIMOD HYDROCHLORIDE
     Indication: PRODUCT USED FOR UNKNOWN INDICATION
     Dosage: UNK
     Route: 065
     Dates: start: 2012, end: 201612

REACTIONS (7)
  - Fatigue [Unknown]
  - Malaise [Unknown]
  - White blood cell count decreased [Unknown]
  - Central nervous system lesion [Recovering/Resolving]
  - Lymphocyte count decreased [Unknown]
  - Influenza [Unknown]
  - Brain oedema [Unknown]

NARRATIVE: CASE EVENT DATE: 2016
